FAERS Safety Report 25224846 (Version 2)
Quarter: 2025Q2

REPORT INFORMATION
  Report Type: Report from Study
  Country: JP (occurrence: JP)
  Receive Date: 20250422
  Receipt Date: 20250520
  Transmission Date: 20250716
  Serious: Yes (Death, Hospitalization, Other)
  Sender: INSMED
  Company Number: JP-INSMED, INC.-2025-00267-JP

PATIENT
  Age: 72 Year
  Sex: Female
  Weight: 26 kg

DRUGS (1)
  1. ARIKAYCE [Suspect]
     Active Substance: AMIKACIN
     Indication: Mycobacterium avium complex infection
     Dosage: 590 MILLIGRAM, QD
     Route: 055
     Dates: start: 20250111, end: 202503

REACTIONS (5)
  - Mycobacterium avium complex infection [Fatal]
  - Weight decreased [Unknown]
  - Aphonia [Recovering/Resolving]
  - Asthenia [Unknown]
  - Dysphonia [Not Recovered/Not Resolved]

NARRATIVE: CASE EVENT DATE: 20250101
